FAERS Safety Report 12188160 (Version 2)
Quarter: 2016Q1

REPORT INFORMATION
  Report Type: Spontaneous
  Country: DK (occurrence: DK)
  Receive Date: 20160317
  Receipt Date: 20160331
  Transmission Date: 20160526
  Serious: Yes (Hospitalization)
  Sender: FDA-Public Use
  Company Number: DK-PFIZER INC-2016155379

PATIENT
  Age: 35 Year
  Sex: Male

DRUGS (1)
  1. MORPHINE SULFATE. [Suspect]
     Active Substance: MORPHINE SULFATE
     Indication: BRONCHITIS CHRONIC
     Dosage: (1.5-2 CG)

REACTIONS (3)
  - Hypopnoea [Unknown]
  - Cyanosis [Unknown]
  - Loss of consciousness [Recovering/Resolving]
